FAERS Safety Report 4716124-5 (Version None)
Quarter: 2005Q3

REPORT INFORMATION
  Report Type: 
  Country: None (occurrence: None)
  Receive Date: 20050718
  Receipt Date: 20050711
  Transmission Date: 20060218
  Serious: Yes (Hospitalization)
  Sender: FDA-Public Use
  Company Number: FR-MERCK-0507FRA00042

PATIENT
  Age: 39 Year
  Sex: Female

DRUGS (5)
  1. NOROXIN [Suspect]
     Indication: CANDIDIASIS
     Route: 048
     Dates: start: 20050407
  2. FLUCONAZOLE [Suspect]
     Indication: CANDIDIASIS
     Route: 048
     Dates: start: 20050407
  3. ESOMEPRAZOLE [Suspect]
     Indication: GASTRIC ULCER HAEMORRHAGE
     Route: 048
     Dates: start: 20050407
  4. SACCHAROMYCES BOULARDII (AS DRUG) [Concomitant]
     Indication: DIARRHOEA
     Route: 048
     Dates: start: 20050407
  5. AMOXICILLIN AND CLAVULANATE POTASSIUM [Concomitant]
     Indication: BRONCHITIS
     Route: 065
     Dates: start: 20050328, end: 20050405

REACTIONS (3)
  - ABDOMINAL PAIN [None]
  - HEADACHE [None]
  - VERTIGO [None]
